FAERS Safety Report 23134738 (Version 1)
Quarter: 2023Q4

REPORT INFORMATION
  Report Type: Spontaneous
  Country: US (occurrence: US)
  Receive Date: 20231101
  Receipt Date: 20231101
  Transmission Date: 20240110
  Serious: Yes (Death, Other)
  Sender: FDA-Public Use
  Company Number: US-AMGEN-USASP2023189248

PATIENT

DRUGS (7)
  1. BEVACIZUMAB [Suspect]
     Active Substance: BEVACIZUMAB
     Indication: Retinopathy of prematurity
     Dosage: UNK
     Route: 065
  2. NITRIC OXIDE [Concomitant]
     Active Substance: NITRIC OXIDE
     Indication: Pulmonary hypertension
     Dosage: UNK
     Route: 065
  3. DOBUTAMINE [Concomitant]
     Active Substance: DOBUTAMINE HYDROCHLORIDE
     Indication: Right ventricular dysfunction
     Dosage: STARTING DOSE OF 2.5-5 MICROGRAM/KG/MIN
     Route: 042
  4. DOBUTAMINE [Concomitant]
     Active Substance: DOBUTAMINE HYDROCHLORIDE
     Indication: Left ventricular dysfunction
     Dosage: 10 MICROGRAM PER KILOGRAM PER MIN
     Route: 042
  5. EPINEPHRINE [Concomitant]
     Active Substance: EPINEPHRINE
     Indication: Right ventricular dysfunction
     Dosage: 0.03-0.05 MG/KG/MIN
     Route: 065
  6. EPINEPHRINE [Concomitant]
     Active Substance: EPINEPHRINE
     Indication: Left ventricular dysfunction
  7. ACETAMINOPHEN [Concomitant]
     Active Substance: ACETAMINOPHEN
     Indication: Patent ductus arteriosus
     Dosage: 15 MILLIGRAM/KILOGRAM
     Route: 042

REACTIONS (8)
  - Death [Fatal]
  - Intraventricular haemorrhage [Fatal]
  - Bronchopulmonary dysplasia [Fatal]
  - Necrotising colitis [Unknown]
  - Intestinal perforation [Unknown]
  - Pneumothorax [Unknown]
  - Pulmonary haemorrhage [Unknown]
  - Off label use [Unknown]
